FAERS Safety Report 8197161-8 (Version None)
Quarter: 2012Q1

REPORT INFORMATION
  Report Type: 
  Country: None (occurrence: None)
  Receive Date: 20120309
  Receipt Date: 20120229
  Transmission Date: 20120608
  Serious: Yes (Hospitalization)
  Sender: FDA-Public Use
  Company Number: US-JNJFOC-20120301778

PATIENT
  Sex: Female

DRUGS (4)
  1. DURAGESIC-100 [Suspect]
     Indication: PAIN
     Route: 062
  2. DURAGESIC-100 [Suspect]
     Route: 062
     Dates: start: 20010101, end: 20110101
  3. FENTANYL [Suspect]
     Indication: PAIN
     Route: 062
     Dates: start: 20110101, end: 20120101
  4. FENTANYL [Suspect]
     Route: 062
     Dates: start: 20100101

REACTIONS (4)
  - SURGERY [None]
  - BEDRIDDEN [None]
  - PAIN [None]
  - DRUG INEFFECTIVE [None]
